FAERS Safety Report 8123202-X (Version None)
Quarter: 2012Q1

REPORT INFORMATION
  Report Type: 
  Country: None (occurrence: None)
  Receive Date: 20120208
  Receipt Date: 20120201
  Transmission Date: 20120608
  Serious: Yes (Other)
  Sender: FDA-Public Use
  Company Number: PHHY2012NL009348

PATIENT

DRUGS (1)
  1. AMOXICILLIN [Suspect]
     Indication: RESPIRATORY DISORDER
     Dosage: 1 DF, TID
     Route: 048
     Dates: start: 20111230

REACTIONS (6)
  - HYPERSENSITIVITY [None]
  - SWOLLEN TONGUE [None]
  - CHEILITIS [None]
  - OROPHARYNGEAL PAIN [None]
  - GOITRE [None]
  - BURNING SENSATION [None]
